FAERS Safety Report 8424031-X (Version None)
Quarter: 2012Q2

REPORT INFORMATION
  Report Type: 
  Country: None (occurrence: None)
  Receive Date: 20120608
  Receipt Date: 20110517
  Transmission Date: 20120825
  Serious: No
  Sender: FDA-Public Use
  Company Number: US-ASTRAZENECA-2011SE29869

PATIENT
  Age: 63 Year
  Sex: Female
  Weight: 90.7 kg

DRUGS (2)
  1. PULMICORT FLEXHALER [Suspect]
     Indication: ASTHMA
     Route: 055
     Dates: start: 20110401, end: 20110410
  2. LEVOTHYROXINE SODIUM [Concomitant]
     Indication: THYROID DISORDER

REACTIONS (2)
  - BLOOD CORTISOL INCREASED [None]
  - BLOOD GLUCOSE INCREASED [None]
